FAERS Safety Report 6735427-6 (Version None)
Quarter: 2010Q2

REPORT INFORMATION
  Report Type: 
  Country: None (occurrence: None)
  Receive Date: 20100521
  Receipt Date: 20100510
  Transmission Date: 20101027
  Serious: Yes (Other)
  Sender: FDA-Public Use
  Company Number: PHHY2009CA27736

PATIENT
  Sex: Female

DRUGS (1)
  1. SANDOSTATIN LAR [Suspect]
     Indication: ACROMEGALY
     Dosage: 30 MG EVERY 4 WEEKS
     Route: 030
     Dates: start: 20050609

REACTIONS (4)
  - ANGINA PECTORIS [None]
  - BACK PAIN [None]
  - MUSCULOSKELETAL PAIN [None]
  - PITUITARY TUMOUR REMOVAL [None]
